FAERS Safety Report 7928188-6 (Version None)
Quarter: 2011Q4

REPORT INFORMATION
  Report Type: 
  Country: None (occurrence: None)
  Receive Date: 20111118
  Receipt Date: 20111117
  Transmission Date: 20120403
  Serious: No
  Sender: FDA-Public Use
  Company Number: US-B.I. PHARMACEUTICALS,INC./RIDGEFIELD-2011-BP-22812BP

PATIENT
  Sex: Female

DRUGS (5)
  1. MUCINEX [Concomitant]
     Indication: EMPHYSEMA
     Route: 048
  2. SIMVASTATIN [Concomitant]
     Indication: BLOOD CHOLESTEROL INCREASED
  3. SPIRIVA [Suspect]
     Indication: EMPHYSEMA
  4. LEVOTHYROXINE SODIUM [Concomitant]
     Indication: HYPOTHYROIDISM
  5. SPIRIVA [Suspect]
     Indication: CHRONIC OBSTRUCTIVE PULMONARY DISEASE
     Dosage: 18 MCG
     Route: 055
     Dates: start: 20110801

REACTIONS (6)
  - INCREASED BRONCHIAL SECRETION [None]
  - PRODUCTIVE COUGH [None]
  - COUGH [None]
  - INCREASED UPPER AIRWAY SECRETION [None]
  - DYSPHONIA [None]
  - INSOMNIA [None]
